FAERS Safety Report 10601778 (Version 2)
Quarter: 2015Q1

REPORT INFORMATION
  Report Type: Spontaneous
  Country: FR (occurrence: FR)
  Receive Date: 20141124
  Receipt Date: 20150113
  Transmission Date: 20150720
  Serious: Yes (Death, Other)
  Sender: FDA-Public Use
  Company Number: FR-ELI_LILLY_AND_COMPANY-FR201411005986

PATIENT
  Age: 65 Year
  Sex: Male
  Weight: 57 kg

DRUGS (16)
  1. HALDOL [Concomitant]
     Active Substance: HALOPERIDOL
     Dosage: UNK UNK, OTHER: 2MG/ML
     Route: 065
  2. OXINORM                            /00045603/ [Concomitant]
     Dosage: 5 MG, UNKNOWN
     Route: 065
  3. PRIMPERAN [Concomitant]
     Active Substance: METOCLOPRAMIDE HYDROCHLORIDE
     Dosage: UNK UNK, UNKNOWN
     Route: 065
  4. TRANSIPEG                          /00754501/ [Concomitant]
     Active Substance: POLYETHYLENE GLYCOL 3350
     Dosage: 5.9 G, UNKNOWN
     Route: 065
  5. FRAGMINE [Concomitant]
     Active Substance: DALTEPARIN SODIUM
     Dosage: UNK, OTHER
     Route: 065
  6. CISPLATIN. [Suspect]
     Active Substance: CISPLATIN
     Indication: LUNG ADENOCARCINOMA STAGE IV
     Dosage: 120 MG, UNKNOWN
     Route: 065
     Dates: start: 20140930
  7. ACIDO FOLICO [Concomitant]
     Dosage: UNK UNK, UNKNOWN
     Route: 065
  8. ALPRAZOLAM. [Concomitant]
     Active Substance: ALPRAZOLAM
     Dosage: UNK UNK, UNKNOWN
     Route: 065
  9. ALIMTA [Suspect]
     Active Substance: PEMETREXED DISODIUM
     Indication: LUNG ADENOCARCINOMA STAGE IV
     Dosage: 850 MG, UNKNOWN
     Route: 042
     Dates: start: 20140930
  10. CORTANCYL [Concomitant]
     Active Substance: PREDNISONE
     Dosage: 20 MG, UNKNOWN
     Route: 065
  11. DAFALGAN [Concomitant]
     Active Substance: ACETAMINOPHEN
     Dosage: 500 MG, UNKNOWN
     Route: 065
  12. SPIRIVA [Concomitant]
     Active Substance: TIOTROPIUM BROMIDE MONOHYDRATE
     Dosage: UNK UNK, UNKNOWN
     Route: 065
  13. OXYCONTIN [Concomitant]
     Active Substance: OXYCODONE HYDROCHLORIDE
     Dosage: UNK UNK, UNKNOWN
     Route: 065
  14. SPASFON                            /00934601/ [Concomitant]
     Dosage: UNK, UNKNOWN
     Route: 065
  15. VENTOLINE                          /00139501/ [Concomitant]
     Dosage: UNK UNK, UNKNOWN
     Route: 065
  16. STILNOX [Concomitant]
     Active Substance: ZOLPIDEM TARTRATE
     Dosage: 10 MG, UNKNOWN
     Route: 065

REACTIONS (9)
  - Septic shock [Fatal]
  - Diarrhoea [Unknown]
  - Shock haemorrhagic [Fatal]
  - General physical health deterioration [Unknown]
  - Tachycardia [Unknown]
  - Nausea [Unknown]
  - Febrile neutropenia [Unknown]
  - Bone marrow failure [Fatal]
  - Vomiting [Unknown]

NARRATIVE: CASE EVENT DATE: 20141003
